FAERS Safety Report 15918937 (Version 1)
Quarter: 2019Q1

REPORT INFORMATION
  Report Type: Spontaneous
  Country: US (occurrence: US)
  Receive Date: 20190205
  Receipt Date: 20190205
  Transmission Date: 20190417
  Serious: Yes (Hospitalization)
  Sender: FDA-Public Use
  Company Number: US-PFIZER INC-2017371273

PATIENT
  Age: 80 Year
  Sex: Male
  Weight: 89.8 kg

DRUGS (3)
  1. LYRICA [Suspect]
     Active Substance: PREGABALIN
     Indication: NEUROPATHY PERIPHERAL
     Dosage: 75 MG, 2X/DAY
     Route: 048
  2. LYRICA [Suspect]
     Active Substance: PREGABALIN
     Indication: PARAESTHESIA
     Dosage: 150 MG, 2X/DAY
     Route: 048
  3. LYRICA [Suspect]
     Active Substance: PREGABALIN
     Dosage: 150 MG, 1X/DAY
     Route: 048

REACTIONS (5)
  - Memory impairment [Unknown]
  - Eating disorder [Recovering/Resolving]
  - Infection [Recovered/Resolved]
  - Asthenia [Recovering/Resolving]
  - Intentional product use issue [Unknown]

NARRATIVE: CASE EVENT DATE: 201901
